FAERS Safety Report 4878177-3 (Version None)
Quarter: 2005Q4

REPORT INFORMATION
  Report Type: 
  Country: None (occurrence: None)
  Receive Date: 20051209
  Receipt Date: 20050513
  Transmission Date: 20060501
  Serious: Yes (Other)
  Sender: FDA-Public Use
  Company Number: USA-2003-0012158

PATIENT
  Age: 55 Year
  Sex: Male
  Weight: 134.2 kg

DRUGS (14)
  1. OXYCONTIN [Suspect]
     Indication: PAIN
     Dosage: 20 MG, BID,
     Dates: start: 19991101
  2. OXYIR [Concomitant]
  3. DARVOCET-N 50 [Concomitant]
  4. TENORMIN [Concomitant]
  5. PROZAC [Concomitant]
  6. ACCUPRIL [Concomitant]
  7. PRILOSEC [Concomitant]
  8. TRICOR [Concomitant]
  9. BACTROBAN [Concomitant]
  10. ASPIRIN [Concomitant]
  11. PROTONIX [Concomitant]
  12. EFFEXOR [Concomitant]
  13. BEXTRA [Concomitant]
  14. ACIPHEX [Concomitant]

REACTIONS (35)
  - ABDOMINAL PAIN [None]
  - ANXIETY [None]
  - ARTHRALGIA [None]
  - BACK PAIN [None]
  - CHEST PAIN [None]
  - COLD SWEAT [None]
  - COUGH [None]
  - DECREASED APPETITE [None]
  - DEPRESSION [None]
  - DRUG DEPENDENCE [None]
  - DRUG INEFFECTIVE [None]
  - DRUG WITHDRAWAL SYNDROME [None]
  - DYSPEPSIA [None]
  - ERYTHEMA [None]
  - GAIT DISTURBANCE [None]
  - GASTRITIS [None]
  - GROIN PAIN [None]
  - HEADACHE [None]
  - HYPERGLYCAEMIA [None]
  - HYPERTENSION [None]
  - HYPOKINESIA [None]
  - INADEQUATE ANALGESIA [None]
  - INSOMNIA [None]
  - MEDICATION ERROR [None]
  - NASAL OEDEMA [None]
  - OSTEOARTHRITIS [None]
  - PAIN [None]
  - PAIN IN EXTREMITY [None]
  - PYREXIA [None]
  - REFLUX OESOPHAGITIS [None]
  - STOMACH DISCOMFORT [None]
  - STRESS [None]
  - TREMOR [None]
  - VOMITING [None]
  - WEIGHT INCREASED [None]
